FAERS Safety Report 19791429 (Version 1)
Quarter: 2021Q3

REPORT INFORMATION
  Report Type: Spontaneous
  Country: DK (occurrence: DK)
  Receive Date: 20210906
  Receipt Date: 20210906
  Transmission Date: 20211014
  Serious: Yes (Hospitalization)
  Sender: FDA-Public Use
  Company Number: DK-PFIZER INC-202101094870

PATIENT
  Age: 69 Year
  Sex: Male

DRUGS (5)
  1. FRAGMIN [Suspect]
     Active Substance: DALTEPARIN SODIUM
     Indication: THROMBOSIS PROPHYLAXIS
     Dosage: 15 IU, 1X/DAY
     Dates: start: 202009
  2. CONTALGIN [Concomitant]
     Active Substance: MORPHINE SULFATE
     Indication: PAIN
     Dosage: UNK
     Dates: start: 20210122
  3. PREDNISOLON ACTAVIS [Suspect]
     Active Substance: PREDNISOLONE
     Indication: NEOPLASM MALIGNANT
     Dosage: SHIFTING, BUT UP UNTIL ADR START: 100 MG (4 TABLETS) DAILY.
     Route: 048
     Dates: start: 201902
  4. GANGIDEN [Concomitant]
     Indication: CONSTIPATION
     Dosage: UNK
  5. PANTOPRAZOL STADA [Concomitant]
     Indication: PROPHYLAXIS AGAINST GASTROINTESTINAL ULCER
     Dosage: UNK
     Dates: start: 20190130

REACTIONS (2)
  - Osteoporosis [Not Recovered/Not Resolved]
  - Intervertebral disc compression [Unknown]

NARRATIVE: CASE EVENT DATE: 202102
